FAERS Safety Report 6206821-7 (Version None)
Quarter: 2009Q2

REPORT INFORMATION
  Report Type: 
  Country: None (occurrence: None)
  Receive Date: 20090528
  Receipt Date: 20090521
  Transmission Date: 20091009
  Serious: Yes (Other)
  Sender: FDA-Public Use
  Company Number: US-ELI_LILLY_AND_COMPANY-US200904005506

PATIENT
  Age: 84 Year
  Sex: Female
  Weight: 54.422 kg

DRUGS (8)
  1. FORTEO [Suspect]
     Indication: OSTEOPOROSIS
     Dosage: 20 UG, DAILY (1/D)
     Dates: start: 20090422, end: 20090422
  2. METOPROLOL SUCCINATE [Concomitant]
     Dosage: 25 MG, DAILY (1/D)
  3. FLOMAX [Concomitant]
     Dosage: 0.4 MG, DAILY (1/D)
  4. PERCOCET [Concomitant]
     Dosage: UNK, AS NEEDED
  5. TORSEMIDE [Concomitant]
     Dosage: 20 MG, DAILY (1/D)
  6. LEVOTHROID [Concomitant]
     Dosage: 50 UG, DAILY (1/D)
  7. DIOVAN HCT [Concomitant]
     Dosage: UNK, DAILY (1/D)
  8. POTASSIUM CHLORIDE [Concomitant]
     Dosage: 10 MEQ, DAILY (1/D)

REACTIONS (5)
  - BACK PAIN [None]
  - DYSARTHRIA [None]
  - DYSGEUSIA [None]
  - FACIAL PALSY [None]
  - TRANSIENT ISCHAEMIC ATTACK [None]
